FAERS Safety Report 8435497-3 (Version None)
Quarter: 2012Q2

REPORT INFORMATION
  Report Type: 
  Country: None (occurrence: None)
  Receive Date: 20120614
  Receipt Date: 20120605
  Transmission Date: 20120825
  Serious: Yes (Hospitalization)
  Sender: FDA-Public Use
  Company Number: US-BAYER-2012-011040

PATIENT
  Age: 37 Year
  Sex: Female
  Weight: 83.9 kg

DRUGS (8)
  1. CEFADROXIL [Concomitant]
     Dosage: UNK
     Dates: start: 20081207
  2. AZITHROMYCIN [Concomitant]
     Dosage: 250 MG, UNK
     Dates: start: 20081106
  3. YAZ [Suspect]
     Indication: CONTRACEPTION
     Dosage: UNK
     Dates: start: 20070119, end: 20090105
  4. PROVENTIL [Concomitant]
     Dosage: 90 MCG, UNK
     Route: 045
     Dates: start: 20081106
  5. AMOXICILLIN AND CLAVULANATE POTASSIUM [Concomitant]
     Dosage: 875-125 MG, UNK
     Dates: start: 20081117
  6. METHYLPREDNISOLONE [Concomitant]
     Dosage: 4 MG, UNK
     Dates: start: 20081117
  7. YASMIN [Suspect]
     Indication: CONTRACEPTION
     Dosage: UNK
     Dates: start: 20041028, end: 20070524
  8. ULTRAVATE [Concomitant]
     Dosage: 0.05 %, TWICE DAILY

REACTIONS (6)
  - CHOLECYSTITIS CHRONIC [None]
  - PAIN [None]
  - EMOTIONAL DISTRESS [None]
  - INJURY [None]
  - GENERAL PHYSICAL HEALTH DETERIORATION [None]
  - ANXIETY [None]
